FAERS Safety Report 10393984 (Version 1)
Quarter: 2014Q3

REPORT INFORMATION
  Report Type: Spontaneous
  Country: US (occurrence: US)
  Receive Date: 20140819
  Receipt Date: 20140819
  Transmission Date: 20150326
  Serious: Yes (Other)
  Sender: FDA-Public Use
  Company Number: US-PFIZER INC-2014229391

PATIENT
  Age: 53 Year
  Sex: Male
  Weight: 82.54 kg

DRUGS (4)
  1. LYRICA [Suspect]
     Active Substance: PREGABALIN
     Indication: FIBROMYALGIA
     Dosage: 250 MG, 2X/DAY
     Route: 048
     Dates: start: 2011
  2. LYRICA [Suspect]
     Active Substance: PREGABALIN
     Dosage: 150 MG, 2X/DAY
     Route: 048
  3. CITALOPRAM [Concomitant]
     Active Substance: CITALOPRAM HYDROBROMIDE
     Dosage: UNK
  4. MELOXICAM. [Concomitant]
     Active Substance: MELOXICAM
     Dosage: 20 MG, UNK

REACTIONS (8)
  - Asthenia [Unknown]
  - Abnormal behaviour [Unknown]
  - Anxiety [Unknown]
  - Social avoidant behaviour [Unknown]
  - Peripheral swelling [Unknown]
  - Lethargy [Unknown]
  - Oedema [Unknown]
  - Depression [Unknown]
